FAERS Safety Report 15448797 (Version 1)
Quarter: 2018Q3

REPORT INFORMATION
  Report Type: Report from Study
  Country: US (occurrence: US)
  Receive Date: 20180929
  Receipt Date: 20180929
  Transmission Date: 20181010
  Serious: Yes (Death)
  Sender: FDA-Public Use
  Company Number: US-UCBSA-2018036689

PATIENT
  Sex: Male

DRUGS (9)
  1. FELBATOL [Concomitant]
     Active Substance: FELBAMATE
     Indication: SEIZURE
  2. ATIVAN [Concomitant]
     Active Substance: LORAZEPAM
     Indication: SEIZURE
  3. LEVETIRACETAM. [Suspect]
     Active Substance: LEVETIRACETAM
     Indication: SEIZURE
     Dosage: UNK
  4. DEPAKOTE [Concomitant]
     Active Substance: DIVALPROEX SODIUM
     Indication: SEIZURE
     Dosage: UNK
  5. TOPAMAX [Concomitant]
     Active Substance: TOPIRAMATE
     Indication: SEIZURE
  6. TRANXENE [Concomitant]
     Active Substance: CLORAZEPATE DIPOTASSIUM
     Indication: SEIZURE
  7. VIGABATRIN. [Concomitant]
     Active Substance: VIGABATRIN
     Indication: SEIZURE
  8. CHLORAL HYDRATE [Concomitant]
     Active Substance: CHLORAL HYDRATE
     Indication: SEIZURE
  9. LAMICTAL [Concomitant]
     Active Substance: LAMOTRIGINE
     Indication: SEIZURE

REACTIONS (1)
  - Seizure [Fatal]
